FAERS Safety Report 7541395-X (Version None)
Quarter: 2011Q2

REPORT INFORMATION
  Report Type: 
  Country: None (occurrence: None)
  Receive Date: 20110613
  Receipt Date: 20110602
  Transmission Date: 20111010
  Serious: No
  Sender: FDA-Public Use
  Company Number: US-BIOGENIDEC-2010BI035439

PATIENT
  Age: 55 Year
  Sex: Female

DRUGS (1)
  1. TYSABRI [Suspect]
     Indication: MULTIPLE SCLEROSIS
     Route: 042
     Dates: start: 20080703

REACTIONS (6)
  - BLINDNESS TRANSIENT [None]
  - FEELING COLD [None]
  - LOSS OF CONSCIOUSNESS [None]
  - SYNCOPE [None]
  - ORTHOSTATIC HYPOTENSION [None]
  - HEAD INJURY [None]
